FAERS Safety Report 6043221-7 (Version None)
Quarter: 2009Q1

REPORT INFORMATION
  Report Type: 
  Country: None (occurrence: None)
  Receive Date: 20090119
  Receipt Date: 20090107
  Transmission Date: 20090719
  Serious: Yes (Hospitalization)
  Sender: FDA-Public Use
  Company Number: GB-ELI_LILLY_AND_COMPANY-GB200901000976

PATIENT
  Age: 30 Year
  Sex: Male

DRUGS (3)
  1. ZYPREXA [Suspect]
     Indication: SCHIZOPHRENIA
     Dosage: 10 MG, UNK
     Dates: start: 19990101
  2. ZYPREXA [Suspect]
     Dosage: 20 MG, UNK
     Dates: end: 20080101
  3. ZYPREXA [Suspect]
     Dosage: 15 MG, UNK
     Dates: start: 20080101

REACTIONS (5)
  - ADVERSE DRUG REACTION [None]
  - HALLUCINATION, AUDITORY [None]
  - HOSPITALISATION [None]
  - NIGHTMARE [None]
  - SPEECH DISORDER [None]
